FAERS Safety Report 4527490-8 (Version None)
Quarter: 2004Q4

REPORT INFORMATION
  Report Type: 
  Country: None (occurrence: None)
  Receive Date: 20041215
  Receipt Date: 20030305
  Transmission Date: 20050328
  Serious: Yes (Other)
  Sender: FDA-Public Use
  Company Number: ES-NOVOPROD-225477

PATIENT
  Age: 70 Year
  Sex: Male
  Weight: 80 kg

DRUGS (5)
  1. NOVONORM [Suspect]
     Dosage: 1-1.5 MG
     Route: 048
     Dates: start: 20021210, end: 20030103
  2. DACORTIN [Concomitant]
     Indication: PNEUMONIA
     Dosage: 30 MG, QD
     Route: 048
     Dates: start: 20021223, end: 20021226
  3. DACORTIN [Concomitant]
     Dosage: 15 MG, QD
     Route: 048
     Dates: start: 20021227, end: 20021230
  4. DACORTIN [Concomitant]
     Dosage: 10 MG, QD
     Route: 048
     Dates: start: 20021231, end: 20030202
  5. SALIDUR [Concomitant]
     Indication: OEDEMA
     Dates: start: 20021231, end: 20030202

REACTIONS (2)
  - CHOLESTASIS [None]
  - JAUNDICE [None]
